FAERS Safety Report 8139265-1 (Version None)
Quarter: 2012Q1

REPORT INFORMATION
  Report Type: 
  Country: None (occurrence: None)
  Receive Date: 20120215
  Receipt Date: 20120209
  Transmission Date: 20120608
  Serious: Yes (Other)
  Sender: FDA-Public Use
  Company Number: US-BAYER-2012-013725

PATIENT
  Sex: Male

DRUGS (4)
  1. LEVITRA [Suspect]
     Indication: ERECTILE DYSFUNCTION
     Dosage: 10 MG, Q1MON
     Route: 048
     Dates: start: 20101001, end: 20111001
  2. ASPIRIN [Concomitant]
  3. ATRIPLA [Concomitant]
     Dosage: UNK
     Dates: start: 20110101
  4. VITAMIN B COMPLEX CAP [Concomitant]

REACTIONS (5)
  - HYPOACUSIS [None]
  - FLUSHING [None]
  - DEAFNESS [None]
  - HEARING IMPAIRED [None]
  - SINUS CONGESTION [None]
